FAERS Safety Report 6289151-7 (Version None)
Quarter: 2009Q3

REPORT INFORMATION
  Report Type: 
  Country: None (occurrence: None)
  Receive Date: 20090728
  Receipt Date: 20090620
  Transmission Date: 20100115
  Serious: Yes (Death, Hospitalization, Other)
  Sender: FDA-Public Use
  Company Number: 2005EU000946

PATIENT
  Age: 53 Year
  Sex: Male

DRUGS (28)
  1. TACROLIMUS [Suspect]
     Indication: RENAL TRANSPLANT
     Dosage: 2 MG, TID, ORAL; 1 MG, BID, ORAL
     Route: 048
     Dates: start: 20030918
  2. TACROLIMUS [Suspect]
     Indication: RENAL TRANSPLANT
     Dosage: 2 MG, TID, ORAL; 1 MG, BID, ORAL
     Route: 048
     Dates: start: 20040919
  3. DACLIZUMAB(DACLIZUMAB) [Suspect]
     Indication: RENAL TRANSPLANT
     Dosage: 108 MG, UID/QD, ORAL; 55 MG, OTHER,; 52 MG, UID/QD,; 55 MG,
     Dates: start: 20031002, end: 20031113
  4. DACLIZUMAB(DACLIZUMAB) [Suspect]
     Indication: RENAL TRANSPLANT
     Dosage: 108 MG, UID/QD, ORAL; 55 MG, OTHER,; 52 MG, UID/QD,; 55 MG,
     Dates: start: 20030918
  5. DACLIZUMAB(DACLIZUMAB) [Suspect]
     Indication: RENAL TRANSPLANT
     Dosage: 108 MG, UID/QD, ORAL; 55 MG, OTHER,; 52 MG, UID/QD,; 55 MG,
     Dates: start: 20031030
  6. DACLIZUMAB(DACLIZUMAB) [Suspect]
     Indication: RENAL TRANSPLANT
     Dosage: 108 MG, UID/QD, ORAL; 55 MG, OTHER,; 52 MG, UID/QD,; 55 MG,
     Dates: start: 20031113
  7. MYCOPHENOLATE MOFETIL [Suspect]
     Indication: RENAL TRANSPLANT
     Dosage: 1000 MG, BID, ORAL; 500 MG, BID,; 1000 MG, BID,; 750 MG, BID,; 250 MG, BID,
     Route: 048
     Dates: start: 20040622, end: 20040713
  8. MYCOPHENOLATE MOFETIL [Suspect]
     Indication: RENAL TRANSPLANT
     Dosage: 1000 MG, BID, ORAL; 500 MG, BID,; 1000 MG, BID,; 750 MG, BID,; 250 MG, BID,
     Route: 048
     Dates: start: 20030918
  9. MYCOPHENOLATE MOFETIL [Suspect]
     Indication: RENAL TRANSPLANT
     Dosage: 1000 MG, BID, ORAL; 500 MG, BID,; 1000 MG, BID,; 750 MG, BID,; 250 MG, BID,
     Route: 048
     Dates: start: 20030927
  10. MYCOPHENOLATE MOFETIL [Suspect]
     Indication: RENAL TRANSPLANT
     Dosage: 1000 MG, BID, ORAL; 500 MG, BID,; 1000 MG, BID,; 750 MG, BID,; 250 MG, BID,
     Route: 048
     Dates: start: 20031005
  11. MYCOPHENOLATE MOFETIL [Suspect]
     Indication: RENAL TRANSPLANT
     Dosage: 1000 MG, BID, ORAL; 500 MG, BID,; 1000 MG, BID,; 750 MG, BID,; 250 MG, BID,
     Route: 048
     Dates: start: 20040606
  12. PREDNISONE TAB [Suspect]
     Indication: RENAL TRANSPLANT
     Dosage: 5 MG, UID/QD, ORAL; 10 MG, UID/QD, ORAL
     Route: 048
     Dates: start: 20031124, end: 20040822
  13. PREDNISONE TAB [Suspect]
     Indication: RENAL TRANSPLANT
     Dosage: 5 MG, UID/QD, ORAL; 10 MG, UID/QD, ORAL
     Route: 048
     Dates: start: 20030919
  14. CILAZAPRIL (CILAZAPRIL) [Concomitant]
  15. ATENOLOL [Concomitant]
  16. RESPRIM (SULFAMETHOXAZOLE, TRIMETHOPRIM) [Concomitant]
  17. SULFAMETHOXAZOLE AND TRIMETHOPRIM [Concomitant]
  18. NPH ILETIN I (INSULIN INJECTION, ISOPHANE) [Concomitant]
  19. CARVEDILOL [Concomitant]
  20. OMEPRAZOLE [Concomitant]
  21. METHYLDOPA [Concomitant]
  22. CIPROFLOXACIN [Concomitant]
  23. ASPIRIN [Concomitant]
  24. INSULIN (INSULIN) [Concomitant]
  25. ACTRAPID HM (INSULIN HUMAN) [Concomitant]
  26. HEPARIN [Concomitant]
  27. NIFEDIPINE [Concomitant]
  28. SODIUM POLYSTYRENE SULFONATE (SODIUM POLYSTYRENE SULFONATE) [Concomitant]

REACTIONS (18)
  - ANAEMIA [None]
  - ASTHENIA [None]
  - BACTERIAL INFECTION [None]
  - BK VIRUS INFECTION [None]
  - DEHYDRATION [None]
  - ELECTROMECHANICAL DISSOCIATION [None]
  - HYPERGLYCAEMIA [None]
  - KIDNEY TRANSPLANT REJECTION [None]
  - METABOLIC ACIDOSIS [None]
  - OLIGURIA [None]
  - PLEURAL EFFUSION [None]
  - PNEUMONIA [None]
  - POLYOMAVIRUS-ASSOCIATED NEPHROPATHY [None]
  - RENAL IMPAIRMENT [None]
  - RENAL TUBULAR NECROSIS [None]
  - SEPTIC SHOCK [None]
  - VENTRICULAR FIBRILLATION [None]
  - VENTRICULAR TACHYCARDIA [None]
